FAERS Safety Report 20104506 (Version 1)
Quarter: 2021Q4

REPORT INFORMATION
  Report Type: Spontaneous
  Country: DE (occurrence: DE)
  Receive Date: 20211123
  Receipt Date: 20211123
  Transmission Date: 20220303
  Serious: Yes (Other)
  Sender: FDA-Public Use
  Company Number: DE-OTSUKA-EU-2014-10643

PATIENT
  Age: 37 Year
  Sex: Female
  Weight: 113 kg

DRUGS (4)
  1. ABILIFY MAINTENA [Suspect]
     Active Substance: ARIPIPRAZOLE
     Indication: Product used for unknown indication
     Dosage: 400 MG, UNK
     Route: 030
     Dates: start: 201410
  2. ABILIFY MAINTENA [Suspect]
     Active Substance: ARIPIPRAZOLE
     Dosage: 400 MG, UNK
     Route: 030
     Dates: start: 20141118
  3. ABILIFY [Suspect]
     Active Substance: ARIPIPRAZOLE
     Indication: Product used for unknown indication
     Dosage: 20 MG, UNK
     Route: 048
  4. ABILIFY [Suspect]
     Active Substance: ARIPIPRAZOLE
     Dosage: 10 MG, UNK
     Route: 048

REACTIONS (5)
  - Mental impairment [Unknown]
  - Malaise [Recovered/Resolved]
  - Psychomotor hyperactivity [Unknown]
  - Restlessness [Recovered/Resolved]
  - Drug ineffective [Unknown]

NARRATIVE: CASE EVENT DATE: 20141118
